FAERS Safety Report 5429672-X (Version None)
Quarter: 2007Q3

REPORT INFORMATION
  Report Type: 
  Country: None (occurrence: None)
  Receive Date: 20070829
  Receipt Date: 20070820
  Transmission Date: 20080115
  Serious: Yes (Hospitalization)
  Sender: FDA-Public Use
  Company Number: US-SHR-US-2007-007134

PATIENT
  Age: 57 Year
  Sex: Female

DRUGS (2)
  1. BETASERON [Suspect]
     Indication: RELAPSING-REMITTING MULTIPLE SCLEROSIS
     Dosage: 8 MIU, EVERY 2D
     Route: 058
     Dates: start: 19950520
  2. CORTICOSTEROIDS [Suspect]
     Dates: start: 20070309

REACTIONS (6)
  - AUTOIMMUNE DISORDER [None]
  - MULTIPLE SCLEROSIS [None]
  - NIGHT SWEATS [None]
  - PYREXIA [None]
  - VIRAL INFECTION [None]
  - WEIGHT INCREASED [None]
